FAERS Safety Report 5822918-5 (Version None)
Quarter: 2008Q3

REPORT INFORMATION
  Report Type: 
  Country: None (occurrence: None)
  Receive Date: 20080724
  Receipt Date: 20080724
  Transmission Date: 20090109
  Serious: Yes (Other)
  Sender: FDA-Public Use
  Company Number: None

PATIENT
  Age: 23 Year
  Sex: Female
  Weight: 76.2043 kg

DRUGS (1)
  1. CHANTIX [Suspect]
     Indication: SMOKING CESSATION THERAPY
     Dosage: 0.5 MG 1/DAY PO; 1.0 MG 1/DAY PO
     Route: 048
     Dates: start: 20080715, end: 20080720

REACTIONS (7)
  - ABNORMAL BEHAVIOUR [None]
  - ABNORMAL DREAMS [None]
  - AGGRESSION [None]
  - ALCOHOL INTERACTION [None]
  - ALCOHOL USE [None]
  - HALLUCINATION [None]
  - LOSS OF CONSCIOUSNESS [None]
